FAERS Safety Report 8823653 (Version 1)
Quarter: 2012Q4

REPORT INFORMATION
  Report Type: 
  Country: US (occurrence: US)
  Receive Date: 20121003
  Receipt Date: 20121003
  Transmission Date: 20130627
  Serious: No
  Sender: FDA-Public Use
  Company Number: US-VERTEX PHARMACEUTICAL INC.-2012-021127

PATIENT
  Age: 61 Year
  Sex: Male

DRUGS (7)
  1. INCIVEK [Suspect]
     Indication: HEPATITIS C
     Dosage: 750 mg, tid
     Route: 048
     Dates: start: 20120823, end: 20120824
  2. PEGINTRON                          /01543001/ [Suspect]
     Indication: HEPATITIS C
     Dosage: 120 ?g, UNK
     Route: 058
     Dates: start: 20120823, end: 20120823
  3. RIBAVIRIN [Suspect]
     Indication: HEPATITIS C
     Dosage: 400 mg, bid
     Route: 048
     Dates: start: 20120823, end: 20120824
  4. ATROVENT [Concomitant]
     Indication: CHRONIC OBSTRUCTIVE PULMONARY DISEASE
     Dosage: 2 puffs
  5. HYDROCODONE/APAP [Concomitant]
     Indication: ARTHRALGIA
     Dosage: 10/500mg, every 6 hours
     Route: 048
  6. MELOXICAM [Concomitant]
     Indication: ARTHRALGIA
     Dosage: 15 mg, qd
     Route: 048
  7. PANTOPRAZOLE [Concomitant]
     Indication: GASTROOESOPHAGEAL REFLUX DISEASE
     Dosage: 40 mg, qd
     Route: 048

REACTIONS (5)
  - Chest pain [Unknown]
  - Palpitations [Unknown]
  - Myalgia [Unknown]
  - Musculoskeletal stiffness [Unknown]
  - Hyperhidrosis [Unknown]
